FAERS Safety Report 6509838-8 (Version None)
Quarter: 2009Q4

REPORT INFORMATION
  Report Type: 
  Country: None (occurrence: None)
  Receive Date: 20091222
  Receipt Date: 20081205
  Transmission Date: 20100525
  Serious: No
  Sender: FDA-Public Use
  Company Number: US-ABBOTT-08P-163-0491634-00

PATIENT
  Sex: Female
  Weight: 9.534 kg

DRUGS (1)
  1. OMNICEF [Suspect]
     Indication: EAR INFECTION
     Dates: start: 20081204

REACTIONS (3)
  - GINGIVAL BLEEDING [None]
  - GINGIVAL SWELLING [None]
  - LIP SWELLING [None]
